FAERS Safety Report 5218232-1 (Version None)
Quarter: 2007Q1

REPORT INFORMATION
  Report Type: 
  Country: None (occurrence: None)
  Receive Date: 20061130
  Receipt Date: 20060421
  Transmission Date: 20070707
  Serious: Yes (Other)
  Sender: FDA-Public Use
  Company Number: US_0509121798

PATIENT
  Sex: Female
  Weight: 90.7 kg

DRUGS (1)
  1. ZYPREXA [Suspect]
     Dosage: ORAL
     Route: 048
     Dates: start: 19960101, end: 19990101

REACTIONS (4)
  - DIABETES MELLITUS [None]
  - DIABETIC KETOACIDOSIS [None]
  - HYPERGLYCAEMIA [None]
  - PANCREATITIS [None]
